FAERS Safety Report 9787606 (Version 2)
Quarter: 2014Q1

REPORT INFORMATION
  Report Type: Spontaneous
  Country: US (occurrence: US)
  Receive Date: 20131230
  Receipt Date: 20140214
  Transmission Date: 20141002
  Serious: Yes (Other)
  Sender: FDA-Public Use
  Company Number: US-SHIRE-ALL1-2013-08954

PATIENT
  Age: 42 Year
  Sex: Female
  Weight: 130.16 kg

DRUGS (3)
  1. VPRIV [Suspect]
     Indication: GAUCHER^S DISEASE
     Dosage: 5200 IU, 1X/WEEK (45IU/KG)
     Route: 041
     Dates: start: 201006
  2. BONIVA [Concomitant]
     Indication: OSTEOPOROSIS
     Dosage: UNK, UNKNOWN
     Route: 041
     Dates: start: 2011
  3. HYDROCHLOROTH [Concomitant]
     Indication: HYPERTENSION
     Dosage: 12.5 MG, 1X/DAY:QD
     Route: 048
     Dates: start: 2011

REACTIONS (1)
  - Hypergammaglobulinaemia benign monoclonal [Not Recovered/Not Resolved]
